FAERS Safety Report 24198102 (Version 1)
Quarter: 2024Q3

REPORT INFORMATION
  Report Type: Report from Study
  Country: CL (occurrence: CL)
  Receive Date: 20240812
  Receipt Date: 20240812
  Transmission Date: 20241016
  Serious: Yes (Other)
  Sender: SANDOZ
  Company Number: CL-SANDOZ-SDZ2024CL071484

PATIENT
  Sex: Female

DRUGS (1)
  1. ERELZI [Suspect]
     Active Substance: ETANERCEPT-SZZS
     Indication: Rheumatoid arthritis
     Dosage: 50 MG/1 ML, 02-AUG-2024, SHE RECEIEVD HER LAST DOSE
     Route: 058
     Dates: start: 20240719

REACTIONS (4)
  - Microphthalmos [Unknown]
  - Eye disorder [Unknown]
  - Dry skin [Unknown]
  - Wound infection [Unknown]
